FAERS Safety Report 22359091 (Version 2)
Quarter: 2023Q2

REPORT INFORMATION
  Report Type: Spontaneous
  Country: JP (occurrence: JP)
  Receive Date: 20230524
  Receipt Date: 20230531
  Transmission Date: 20230722
  Serious: Yes (Other)
  Sender: FDA-Public Use
  Company Number: JP-TAKEDA-2023TJP006097

PATIENT
  Age: 8 Decade
  Sex: Male

DRUGS (1)
  1. CABOMETYX [Suspect]
     Active Substance: CABOZANTINIB S-MALATE
     Indication: Hepatocellular carcinoma
     Dosage: 40 MG, QD
     Route: 048
     Dates: start: 20230502

REACTIONS (8)
  - Ascites [Not Recovered/Not Resolved]
  - Hepatocellular carcinoma [Unknown]
  - Platelet count decreased [Unknown]
  - Tremor [Unknown]
  - Memory impairment [Unknown]
  - Jaundice [Unknown]
  - Blood bilirubin increased [Unknown]
  - White blood cell count decreased [Unknown]

NARRATIVE: CASE EVENT DATE: 20230516
